FAERS Safety Report 23854877 (Version 1)
Quarter: 2024Q2

REPORT INFORMATION
  Report Type: Spontaneous
  Country: US (occurrence: US)
  Receive Date: 20240514
  Receipt Date: 20240514
  Transmission Date: 20240716
  Serious: No
  Sender: FDA-Public Use
  Company Number: US-ANIPHARMA-2024-US-015661

PATIENT
  Sex: Female

DRUGS (7)
  1. CORTICOTROPIN [Suspect]
     Active Substance: CORTICOTROPIN
     Indication: Multiple sclerosis
     Dosage: 80 UNITS DAILY
     Route: 058
  2. EZETIMIBE [Concomitant]
     Active Substance: EZETIMIBE
  3. REBIF REBIDOSE [Concomitant]
     Active Substance: INTERFERON BETA-1A
  4. MONTELUKAST SODIUM [Concomitant]
     Active Substance: MONTELUKAST SODIUM
  5. TRIAMTERENE [Concomitant]
     Active Substance: TRIAMTERENE
  6. METFORMIN HYDROCHLORIDE [Concomitant]
     Active Substance: METFORMIN HYDROCHLORIDE
  7. AMLODIPINE BESYLATE [Concomitant]
     Active Substance: AMLODIPINE BESYLATE

REACTIONS (2)
  - Product dose omission issue [Unknown]
  - Illness [Recovered/Resolved]
